FAERS Safety Report 4931669-0 (Version None)
Quarter: 2006Q1

REPORT INFORMATION
  Report Type: 
  Country: None (occurrence: None)
  Receive Date: 20060303
  Receipt Date: 20051228
  Transmission Date: 20060701
  Serious: Yes (Other)
  Sender: FDA-Public Use
  Company Number: US-BRISTOL-MYERS SQUIBB COMPANY-13230974

PATIENT
  Age: 63 Year
  Sex: Female
  Weight: 62 kg

DRUGS (4)
  1. ERBITUX [Suspect]
     Indication: COLON CANCER
     Route: 042
  2. DIPHENHYDRAMINE [Concomitant]
     Indication: PREMEDICATION
     Route: 042
  3. IRINOTECAN HCL [Concomitant]
  4. ATROPINE [Concomitant]

REACTIONS (1)
  - RASH [None]
